FAERS Safety Report 10461508 (Version 1)
Quarter: 2014Q3

REPORT INFORMATION
  Report Type: Spontaneous
  Country: US (occurrence: None)
  Receive Date: 20140917
  Receipt Date: 20140917
  Transmission Date: 20150326
  Serious: Yes (Hospitalization)
  Sender: FDA-Public Use
  Company Number: None

PATIENT
  Age: 79 Year
  Sex: Female

DRUGS (1)
  1. JAKAFI [Suspect]
     Active Substance: RUXOLITINIB
     Indication: BLOOD DISORDER
     Dosage: 20 MG, TWICE DAY, BY MOUTH
     Route: 048
     Dates: start: 20120829, end: 20140901

REACTIONS (3)
  - Gait disturbance [None]
  - Movement disorder [None]
  - Bursitis [None]

NARRATIVE: CASE EVENT DATE: 20140101
